FAERS Safety Report 7479084-2 (Version None)
Quarter: 2011Q2

REPORT INFORMATION
  Report Type: 
  Country: None (occurrence: None)
  Receive Date: 20110513
  Receipt Date: 20110503
  Transmission Date: 20111010
  Serious: Yes (Hospitalization, Other)
  Sender: FDA-Public Use
  Company Number: US-MERCK-0806USA01838

PATIENT
  Age: 64 Year
  Sex: Female

DRUGS (4)
  1. FOSAMAX [Suspect]
     Indication: OSTEOPOROSIS
     Route: 048
     Dates: start: 19960101, end: 20070301
  2. [THERAPY UNSPECIFIED] [Concomitant]
     Indication: HYPERTENSION
     Route: 065
     Dates: start: 19860101
  3. [THERAPY UNSPECIFIED] [Concomitant]
     Indication: BLOOD CHOLESTEROL INCREASED
     Route: 065
     Dates: start: 19860101
  4. FOSAMAX PLUS D [Suspect]
     Indication: OSTEOPOROSIS
     Route: 048
     Dates: start: 20050701, end: 20051201

REACTIONS (40)
  - OSTEOARTHRITIS [None]
  - MYOCARDIAL INFARCTION [None]
  - ACUTE MYOCARDIAL INFARCTION [None]
  - ISCHAEMIA [None]
  - HYPERLIPIDAEMIA [None]
  - FISTULA DISCHARGE [None]
  - FISTULA [None]
  - DIZZINESS [None]
  - SWELLING FACE [None]
  - DIABETES MELLITUS [None]
  - INFECTION [None]
  - GINGIVAL DISORDER [None]
  - TOOTH EXTRACTION [None]
  - JAW DISORDER [None]
  - CHRONIC SINUSITIS [None]
  - FEMUR FRACTURE [None]
  - BRADYCARDIA [None]
  - TOOTH DISORDER [None]
  - RHEUMATOID ARTHRITIS [None]
  - DEPRESSION [None]
  - OSTEONECROSIS OF JAW [None]
  - PROCEDURAL HYPOTENSION [None]
  - IMPAIRED HEALING [None]
  - FRACTURE [None]
  - BRONCHITIS [None]
  - COLON ADENOMA [None]
  - EATING DISORDER [None]
  - FEAR [None]
  - HYPOAESTHESIA ORAL [None]
  - TOOTH ABSCESS [None]
  - CERUMEN IMPACTION [None]
  - UTERINE DISORDER [None]
  - PARAESTHESIA ORAL [None]
  - ORAL DISORDER [None]
  - MITRAL VALVE INCOMPETENCE [None]
  - EDENTULOUS [None]
  - ATRIOVENTRICULAR BLOCK SECOND DEGREE [None]
  - ACUTE SINUSITIS [None]
  - BALANCE DISORDER [None]
  - LEFT VENTRICULAR HYPERTROPHY [None]
